FAERS Safety Report 7455319-7 (Version None)
Quarter: 2011Q2

REPORT INFORMATION
  Report Type: 
  Country: None (occurrence: None)
  Receive Date: 20110503
  Receipt Date: 20110428
  Transmission Date: 20111010
  Serious: Yes (Hospitalization)
  Sender: FDA-Public Use
  Company Number: US-BRISTOL-MYERS SQUIBB COMPANY-15705379

PATIENT
  Age: 63 Year
  Sex: Male

DRUGS (4)
  1. GABAPENTIN [Concomitant]
  2. SERTRALINE [Concomitant]
  3. IPILIMUMAB [Suspect]
     Indication: MALIGNANT MELANOMA
     Route: 042
     Dates: start: 20100510, end: 20110105
  4. LEVETIRACETAM [Concomitant]

REACTIONS (2)
  - CEREBELLAR HAEMATOMA [None]
  - THROMBOCYTOPENIA [None]
